FAERS Safety Report 15906408 (Version 1)
Quarter: 2019Q1

REPORT INFORMATION
  Report Type: Spontaneous
  Country: US (occurrence: US)
  Receive Date: 20190111
  Receipt Date: 20190111
  Transmission Date: 20190417
  Serious: No
  Sender: FDA-Public Use
  Company Number: None

PATIENT
  Age: 80 Year
  Sex: Female

DRUGS (1)
  1. AFINITOR [Suspect]
     Active Substance: EVEROLIMUS
     Dates: start: 201810

REACTIONS (3)
  - Pneumonia [None]
  - Therapy cessation [None]
  - Tooth discolouration [None]

NARRATIVE: CASE EVENT DATE: 20181215
